FAERS Safety Report 5692465-2 (Version None)
Quarter: 2008Q2

REPORT INFORMATION
  Report Type: 
  Country: None (occurrence: None)
  Receive Date: 20080402
  Receipt Date: 20070918
  Transmission Date: 20081010
  Serious: No
  Sender: FDA-Public Use
  Company Number: US-BAYER-US-2007-035261

PATIENT
  Age: 60 Year
  Sex: Female
  Weight: 67 kg

DRUGS (6)
  1. LEUKINE [Suspect]
     Indication: NEUTROPENIA
     Dosage: UNIT DOSE: 400 ?G
     Route: 058
     Dates: start: 20070822, end: 20070822
  2. ATIVAN [Concomitant]
     Dosage: UNIT DOSE: 1 MG
     Route: 048
  3. TYLENOL EXTRA-STRENGTH [Concomitant]
     Dosage: UNIT DOSE: 1000 MG
     Route: 048
  4. HERCEPTIN ^HOFFMANN-LA ROCHE^ [Concomitant]
     Route: 042
     Dates: start: 20070821
  5. TAXOTERE [Concomitant]
     Route: 042
     Dates: start: 20070821
  6. CARBOPLATIN [Concomitant]
     Route: 042
     Dates: start: 20070821

REACTIONS (4)
  - ABDOMINAL PAIN [None]
  - CHILLS [None]
  - ERYTHEMA [None]
  - NAUSEA [None]
